FAERS Safety Report 4833721-7 (Version None)
Quarter: 2005Q4

REPORT INFORMATION
  Report Type: 
  Country: None (occurrence: None)
  Receive Date: 20051114
  Receipt Date: 20051104
  Transmission Date: 20060501
  Serious: Yes (Other)
  Sender: FDA-Public Use
  Company Number: C-05-0046

PATIENT
  Age: 46 Year
  Sex: Male
  Weight: 136.0791 kg

DRUGS (2)
  1. LINDANE [Suspect]
     Indication: LICE INFESTATION
     Dosage: APPLY ONCE, TOPICAL
     Route: 061
     Dates: start: 20051005
  2. INSULIN AND SERROQUEL (A MAJOR TRANQUILIZER) [Concomitant]

REACTIONS (1)
  - PHARMACEUTICAL PRODUCT COMPLAINT [None]
